FAERS Safety Report 7085044-6 (Version None)
Quarter: 2010Q4

REPORT INFORMATION
  Report Type: 
  Country: None (occurrence: None)
  Receive Date: 20101105
  Receipt Date: 20101025
  Transmission Date: 20110411
  Serious: Yes (Other)
  Sender: FDA-Public Use
  Company Number: CA-JNJFOC-20101007602

PATIENT
  Sex: Male
  Weight: 62.3 kg

DRUGS (5)
  1. REMICADE [Suspect]
     Indication: CROHN'S DISEASE
     Route: 042
  2. REMICADE [Suspect]
     Route: 042
  3. IMURAN [Concomitant]
     Route: 048
  4. ATENOLOL [Concomitant]
  5. CALCIUM [Concomitant]

REACTIONS (2)
  - ABDOMINAL PAIN [None]
  - AORTIC ANEURYSM [None]
